FAERS Safety Report 4407843-9 (Version None)
Quarter: 2004Q3

REPORT INFORMATION
  Report Type: 
  Country: None (occurrence: None)
  Receive Date: 20040726
  Receipt Date: 20040716
  Transmission Date: 20050211
  Serious: Yes (Hospitalization)
  Sender: FDA-Public Use
  Company Number: FR-GLAXOSMITHKLINE-B0339115A

PATIENT
  Age: 47 Year
  Sex: Male

DRUGS (13)
  1. FORTUM [Suspect]
     Indication: ILL-DEFINED DISORDER
     Dosage: 2MG TWICE PER DAY
     Route: 042
     Dates: start: 20040512, end: 20040525
  2. HYPNOVEL [Suspect]
     Indication: ILL-DEFINED DISORDER
     Dosage: 15MG UNKNOWN
     Route: 042
     Dates: start: 20040523, end: 20040525
  3. TOTAMINE GLUCIDIQUE [Suspect]
     Indication: ILL-DEFINED DISORDER
     Route: 042
     Dates: start: 20040523, end: 20040527
  4. HYDROCORTISONE ROUSSEL [Concomitant]
     Dosage: 150MG UNKNOWN
     Route: 042
     Dates: start: 20040523, end: 20040526
  5. TAHOR [Concomitant]
     Route: 048
  6. AMAREL [Concomitant]
     Indication: DIABETES MELLITUS
     Route: 048
  7. MONOTILDIEM LP 300 MG [Concomitant]
     Route: 048
  8. GLUCOPHAGE [Concomitant]
     Indication: DIABETES MELLITUS
     Route: 048
  9. PROPRANOLOL [Concomitant]
  10. TOPALGIC ( FRANCE ) [Concomitant]
     Route: 048
  11. HEXAQUINE [Concomitant]
  12. TANAKAN [Concomitant]
  13. ESPERAL [Concomitant]
     Indication: ALCOHOLISM
     Route: 048

REACTIONS (1)
  - SKIN LESION [None]
